FAERS Safety Report 4488429-7 (Version None)
Quarter: 2004Q4

REPORT INFORMATION
  Report Type: 
  Country: None (occurrence: None)
  Receive Date: 20041026
  Receipt Date: 20041014
  Transmission Date: 20050328
  Serious: Yes (Hospitalization)
  Sender: FDA-Public Use
  Company Number: FABR-10796

PATIENT
  Age: 45 Year
  Sex: Male
  Weight: 68.1 kg

DRUGS (6)
  1. FABRAZYME [Suspect]
     Indication: FABRY'S DISEASE
     Dosage: 70 MG Q2WKS IV
     Route: 042
     Dates: start: 20040514
  2. NORVASC [Concomitant]
  3. TOPROL-XL [Concomitant]
  4. ALBUTEROL [Concomitant]
  5. PAXIL [Concomitant]
  6. ADVAIR [Concomitant]

REACTIONS (5)
  - ABDOMINAL PAIN [None]
  - CHILLS [None]
  - HAEMODIALYSIS [None]
  - PERITONEAL DIALYSIS [None]
  - RENAL FAILURE [None]
